FAERS Safety Report 9395882 (Version 1)
Quarter: 2013Q3

REPORT INFORMATION
  Report Type: Spontaneous
  Country: FR (occurrence: FR)
  Receive Date: 20130711
  Receipt Date: 20130711
  Transmission Date: 20140515
  Serious: Yes (Disabling)
  Sender: FDA-Public Use
  Company Number: FR-GLAXOSMITHKLINE-B0904992A

PATIENT
  Age: 50 Year
  Sex: Male

DRUGS (2)
  1. FLOLAN [Suspect]
     Indication: PULMONARY ARTERIAL HYPERTENSION
     Dosage: 17MGK PER DAY
     Route: 065
     Dates: start: 201304
  2. REVATIO [Concomitant]
     Indication: PULMONARY ARTERIAL HYPERTENSION
     Dosage: 20MG THREE TIMES PER DAY
     Route: 065
     Dates: start: 201302

REACTIONS (5)
  - Renal failure acute [Not Recovered/Not Resolved]
  - Thrombocytopenia [Recovered/Resolved]
  - Renal venous congestion [Unknown]
  - Cardiorenal syndrome [Unknown]
  - Azotaemia [Recovered/Resolved]
